FAERS Safety Report 19105284 (Version 2)
Quarter: 2021Q2

REPORT INFORMATION
  Report Type: Spontaneous
  Country: US (occurrence: US)
  Receive Date: 20210407
  Receipt Date: 20210512
  Transmission Date: 20210717
  Serious: Yes (Hospitalization, Other)
  Sender: FDA-Public Use
  Company Number: NVSC2021US075018

PATIENT
  Age: 72 Year
  Sex: Male
  Weight: 80 kg

DRUGS (1)
  1. KYMRIAH [Suspect]
     Active Substance: TISAGENLECLEUCEL
     Indication: DIFFUSE LARGE B-CELL LYMPHOMA
     Dosage: 4.6 DF, ONCE/SINGLE
     Route: 042
     Dates: start: 20210322, end: 20210322

REACTIONS (5)
  - Serum ferritin increased [Unknown]
  - Neurotoxicity [Recovered/Resolved]
  - Dizziness [Recovered/Resolved]
  - Apraxia [Recovered/Resolved]
  - C-reactive protein increased [Unknown]

NARRATIVE: CASE EVENT DATE: 20210329
